FAERS Safety Report 4744164-9 (Version None)
Quarter: 2005Q3

REPORT INFORMATION
  Report Type: 
  Country: None (occurrence: None)
  Receive Date: 20050812
  Receipt Date: 20050805
  Transmission Date: 20060218
  Serious: Yes (Other)
  Sender: FDA-Public Use
  Company Number: US-JNJFOC-20050802254

PATIENT
  Sex: Male
  Weight: 13.15 kg

DRUGS (1)
  1. LEVAQUIN [Suspect]
     Indication: HYDRONEPHROSIS

REACTIONS (1)
  - TOOTH DISCOLOURATION [None]
